FAERS Safety Report 5988383-2 (Version None)
Quarter: 2008Q4

REPORT INFORMATION
  Report Type: 
  Country: None (occurrence: None)
  Receive Date: 20081204
  Receipt Date: 20081124
  Transmission Date: 20090506
  Serious: Yes (Hospitalization, Other)
  Sender: FDA-Public Use
  Company Number: 106303

PATIENT
  Age: 43 Year
  Sex: Female

DRUGS (5)
  1. ACETAMINOPHEN [Suspect]
     Indication: PAIN
     Dosage: 10 G/ORAL
     Route: 048
  2. GABAPENTIN [Suspect]
     Indication: PAIN
     Dosage: 300 MG/TID/ORAL
     Route: 048
  3. FLUOXETINE [Concomitant]
  4. OXYBUTYNIN CHLORIDE [Concomitant]
  5. COPAXONE [Concomitant]

REACTIONS (3)
  - ALCOHOL USE [None]
  - MULTIPLE DRUG OVERDOSE [None]
  - SUICIDE ATTEMPT [None]
